FAERS Safety Report 4558046-9 (Version None)
Quarter: 2005Q1

REPORT INFORMATION
  Report Type: 
  Country: None (occurrence: None)
  Receive Date: 20050121
  Receipt Date: 20040708
  Transmission Date: 20050727
  Serious: Yes (Other)
  Sender: FDA-Public Use
  Company Number: US-BRISTOL-MYERS SQUIBB COMPANY-12640256

PATIENT
  Sex: Male

DRUGS (8)
  1. SERZONE [Suspect]
     Indication: ANXIETY
     Dates: start: 19981216, end: 19991207
  2. SERZONE [Suspect]
     Indication: DEPRESSION
     Dates: start: 19981216, end: 19991207
  3. METHADONE HCL [Concomitant]
  4. SYNTHROID [Concomitant]
  5. ATENOLOL [Concomitant]
  6. LIPITOR [Concomitant]
  7. AMBIEN [Concomitant]
  8. MOTRIN [Concomitant]

REACTIONS (8)
  - ALANINE AMINOTRANSFERASE INCREASED [None]
  - ASPARTATE AMINOTRANSFERASE INCREASED [None]
  - BLOOD LACTATE DEHYDROGENASE INCREASED [None]
  - CONSTIPATION [None]
  - FATIGUE [None]
  - GAMMA-GLUTAMYLTRANSFERASE INCREASED [None]
  - INSOMNIA [None]
  - WEIGHT DECREASED [None]
